FAERS Safety Report 16204754 (Version 4)
Quarter: 2019Q2

REPORT INFORMATION
  Report Type: Report from Study
  Country: CA (occurrence: CA)
  Receive Date: 20190416
  Receipt Date: 20190418
  Transmission Date: 20190711
  Serious: Yes (Hospitalization)
  Sender: FDA-Public Use
  Company Number: CA-HLSUS-2019-CA-000233

PATIENT
  Age: 54 Year
  Sex: Female

DRUGS (1)
  1. CLOZARIL [Suspect]
     Active Substance: CLOZAPINE
     Dosage: 200MG AT SUPER
     Route: 048
     Dates: start: 19930623

REACTIONS (4)
  - Uterine cancer [Unknown]
  - Neutropenia [Unknown]
  - Renal failure [Unknown]
  - Leukopenia [Unknown]

NARRATIVE: CASE EVENT DATE: 20190408
